FAERS Safety Report 5978944-9 (Version None)
Quarter: 2008Q4

REPORT INFORMATION
  Report Type: 
  Country: None (occurrence: None)
  Receive Date: 20081204
  Receipt Date: 20080523
  Transmission Date: 20090506
  Serious: No
  Sender: FDA-Public Use
  Company Number: US-ABBOTT-07P-163-0417164-00

PATIENT
  Sex: Female
  Weight: 84.444 kg

DRUGS (9)
  1. TRICOR [Suspect]
     Indication: BLOOD CHOLESTEROL INCREASED
     Route: 048
     Dates: start: 20070101, end: 20070101
  2. NIASPAN [Suspect]
     Indication: DRUG USE FOR UNKNOWN INDICATION
     Dates: start: 20070101
  3. ATORVASTATIN CALCIUM [Suspect]
     Indication: DRUG USE FOR UNKNOWN INDICATION
     Dates: end: 20070101
  4. EZETIMIBE [Concomitant]
     Indication: BLOOD CHOLESTEROL INCREASED
     Route: 048
     Dates: start: 20070101
  5. ACARBOSE [Concomitant]
     Indication: DIABETES MELLITUS
     Dosage: THREE TIMES DAILY
     Route: 048
  6. LISINOPRIL [Concomitant]
     Indication: DIABETES MELLITUS
     Route: 048
  7. OSCAL [Concomitant]
     Indication: MINERAL SUPPLEMENTATION
     Route: 048
  8. ACETYLSALICYLIC ACID SRT [Concomitant]
     Indication: DRUG USE FOR UNKNOWN INDICATION
     Route: 048
     Dates: start: 20070101
  9. DILTIAZEM [Concomitant]
     Indication: HEART RATE INCREASED
     Route: 048

REACTIONS (1)
  - MUSCLE SPASMS [None]
